FAERS Safety Report 4269623-7 (Version None)
Quarter: 2004Q1

REPORT INFORMATION
  Report Type: 
  Country: None (occurrence: None)
  Receive Date: 20040112
  Receipt Date: 20040101
  Transmission Date: 20041129
  Serious: Yes (Death, Other)
  Sender: FDA-Public Use
  Company Number: 2004000042

PATIENT
  Age: 101 Year
  Sex: Male

DRUGS (1)
  1. AMLODIPINE [Suspect]
     Indication: HYPERTENSION
     Dosage: ORAL
     Route: 048

REACTIONS (4)
  - COMPLETED SUICIDE [None]
  - HYPOTENSION [None]
  - OVERDOSE [None]
  - RENAL FAILURE ACUTE [None]
